FAERS Safety Report 21712690 (Version 1)
Quarter: 2022Q4

REPORT INFORMATION
  Report Type: Spontaneous
  Country: US (occurrence: US)
  Receive Date: 20221212
  Receipt Date: 20221212
  Transmission Date: 20230113
  Serious: No
  Sender: FDA-Public Use
  Company Number: US-ORG100016242-2022000385

PATIENT
  Sex: Female

DRUGS (1)
  1. EXPAREL [Suspect]
     Active Substance: BUPIVACAINE
     Indication: Nerve block
     Dosage: NOT PROVIDED
     Route: 065
     Dates: start: 20220228, end: 20220228

REACTIONS (2)
  - Therapeutic product effect prolonged [Not Recovered/Not Resolved]
  - Off label use [Not Recovered/Not Resolved]

NARRATIVE: CASE EVENT DATE: 20220228
